FAERS Safety Report 11038703 (Version 1)
Quarter: 2015Q2

REPORT INFORMATION
  Report Type: Spontaneous
  Country: US (occurrence: US)
  Receive Date: 20150416
  Receipt Date: 20150416
  Transmission Date: 20150821
  Serious: Yes (Other)
  Sender: FDA-Public Use
  Company Number: US-ABBVIE-15P-163-1374961-00

PATIENT
  Sex: Female

DRUGS (3)
  1. THYROID [Concomitant]
     Active Substance: LEVOTHYROXINE\LIOTHYRONINE
     Indication: HYPOTHYROIDISM
  2. LDN [Concomitant]
     Indication: HYPOTHYROIDISM
  3. SYNTHROID [Suspect]
     Active Substance: LEVOTHYROXINE SODIUM
     Indication: HYPOTHYROIDISM
     Route: 048

REACTIONS (4)
  - Autoimmune thyroiditis [Unknown]
  - Malaise [Unknown]
  - Suicidal ideation [Recovered/Resolved]
  - Adrenal disorder [Unknown]
